FAERS Safety Report 7137581-3 (Version None)
Quarter: 2010Q4

REPORT INFORMATION
  Report Type: 
  Country: None (occurrence: None)
  Receive Date: 20101119
  Receipt Date: 20101110
  Transmission Date: 20110411
  Serious: Yes (Hospitalization)
  Sender: FDA-Public Use
  Company Number: 021897

PATIENT
  Age: 82 Year
  Sex: Male

DRUGS (8)
  1. UNIKET (UNIKET) [Suspect]
     Indication: ACUTE CORONARY SYNDROME
     Dosage: 80 MG ORAL
     Route: 048
     Dates: start: 20100706, end: 20100713
  2. CARDYL (CARDYL) [Suspect]
     Indication: ACUTE CORONARY SYNDROME
     Dosage: 80 MG ORAL
     Route: 048
     Dates: start: 20100706, end: 20100712
  3. NORVASC [Suspect]
     Indication: ANGINA PECTORIS
     Dosage: 10 MG, PER DAY ORAL
     Route: 048
     Dates: start: 20100706, end: 20100730
  4. PLAVIX [Suspect]
     Indication: ACUTE CORONARY SYNDROME
     Dosage: 75 MG ORAL
     Route: 048
     Dates: start: 20100709, end: 20100714
  5. PANTOPRAZOLE [Suspect]
     Indication: PROPHYLAXIS AGAINST GASTROINTESTINAL ULCER
     Dosage: 40 MG ORAL
     Route: 048
     Dates: start: 20100709
  6. ASPIRIN [Suspect]
     Indication: ACUTE CORONARY SYNDROME
     Dosage: 100 MG ORAL
     Route: 048
     Dates: start: 20100706
  7. TENORMIN [Suspect]
     Indication: PRODUCT USED FOR UNKNOWN INDICATION
     Dosage: 50 MG ORAL
     Route: 048
     Dates: start: 20100706
  8. DISTRANEURINE /0007502/ (DISTRANEURINE CAPSULAS) [Suspect]
     Indication: PRODUCT USED FOR UNKNOWN INDICATION
     Dosage: 384 MG
     Dates: start: 20100706, end: 20100707

REACTIONS (2)
  - DRUG INTERACTION [None]
  - HEPATITIS CHOLESTATIC [None]
